FAERS Safety Report 19469658 (Version 1)
Quarter: 2021Q2

REPORT INFORMATION
  Report Type: Report from Study
  Country: CA (occurrence: CA)
  Receive Date: 20210629
  Receipt Date: 20210629
  Transmission Date: 20210717
  Serious: Yes (Other)
  Sender: FDA-Public Use
  Company Number: CA-JNJFOC-20210556825

PATIENT
  Age: 3 Year
  Sex: Female
  Weight: 16 kg

DRUGS (2)
  1. REMICADE [Suspect]
     Active Substance: INFLIXIMAB
     Indication: COLITIS ULCERATIVE
     Route: 042
  2. REMICADE [Suspect]
     Active Substance: INFLIXIMAB
     Dosage: ON 16?JUN?2021, THE PATIENT RECEIVED 1ST 250 MG OF INFLIXIMAB, RECOMBINANT INFUSION.?WILL CONTINUE A
     Route: 042
     Dates: start: 202106

REACTIONS (3)
  - Off label use [Unknown]
  - Colitis ulcerative [Unknown]
  - Product use issue [Unknown]

NARRATIVE: CASE EVENT DATE: 202106
